FAERS Safety Report 18143650 (Version 1)
Quarter: 2020Q3

REPORT INFORMATION
  Report Type: Spontaneous
  Country: IL (occurrence: IL)
  Receive Date: 20200813
  Receipt Date: 20200813
  Transmission Date: 20201103
  Serious: Yes (Hospitalization)
  Sender: FDA-Public Use
  Company Number: IL-B.I. PHARMACEUTICALS,INC./RIDGEFIELD-2020-BI-040542

PATIENT
  Age: 59 Year
  Sex: Male
  Weight: 106 kg

DRUGS (1)
  1. JARDIANCE DUO [Suspect]
     Active Substance: EMPAGLIFLOZIN\METFORMIN HYDROCHLORIDE
     Indication: DIABETES MELLITUS
     Dosage: 12.5/1000 MILLIGRAM
     Route: 065

REACTIONS (4)
  - Abdominal pain [Unknown]
  - Nausea [Unknown]
  - Diabetic ketoacidosis [Recovering/Resolving]
  - COVID-19 [Unknown]

NARRATIVE: CASE EVENT DATE: 2020
